FAERS Safety Report 8607260-1 (Version None)
Quarter: 2012Q3

REPORT INFORMATION
  Report Type: 
  Country: None (occurrence: None)
  Receive Date: 20120821
  Receipt Date: 20120813
  Transmission Date: 20120928
  Serious: Yes (Hospitalization)
  Sender: FDA-Public Use
  Company Number: FR-SP-2012-07670

PATIENT
  Age: 80 Year
  Sex: Male

DRUGS (1)
  1. IMMUCYST [Suspect]
     Indication: BLADDER CANCER
     Route: 043
     Dates: start: 20120606, end: 20120613

REACTIONS (5)
  - SCROTAL PAIN [None]
  - ORCHITIS [None]
  - SCROTAL SWELLING [None]
  - INFECTION [None]
  - HAEMATURIA [None]
